FAERS Safety Report 22657138 (Version 1)
Quarter: 2023Q2

REPORT INFORMATION
  Report Type: Spontaneous
  Country: US (occurrence: US)
  Receive Date: 20230630
  Receipt Date: 20230630
  Transmission Date: 20230722
  Serious: No
  Sender: FDA-Public Use
  Company Number: US-Accord-276595

PATIENT
  Sex: Male

DRUGS (1)
  1. CLONAZEPAM [Suspect]
     Active Substance: CLONAZEPAM
     Indication: Product used for unknown indication
     Dosage: STRENGTH: 1 MG, 1-2 TABLETS AT BEDTIME

REACTIONS (9)
  - Hypertension [Unknown]
  - Feeling hot [Unknown]
  - Urticaria [Unknown]
  - Dyspnoea [Unknown]
  - Confusional state [Unknown]
  - Blood glucose increased [Unknown]
  - Heart rate increased [Unknown]
  - Product quality issue [Unknown]
  - Hypoaesthesia [Unknown]
